FAERS Safety Report 20915734 (Version 1)
Quarter: 2022Q2

REPORT INFORMATION
  Report Type: Spontaneous
  Country: US (occurrence: US)
  Receive Date: 20220604
  Receipt Date: 20220604
  Transmission Date: 20220721
  Serious: No
  Sender: FDA-Public Use
  Company Number: US-SANOFI-01119599

PATIENT
  Age: 79 Year
  Sex: Male

DRUGS (1)
  1. MULTAQ [Suspect]
     Active Substance: DRONEDARONE
     Indication: Cardiac disorder
     Dosage: DRUG STRUCTURE DOSAGE : 400 MG DRUG INTERVAL DOSAGE : HE JUST TOOK ONE TABLET DRUG TREATMENT DURATIO
     Dates: start: 20220524, end: 20220524

REACTIONS (4)
  - Sleep disorder [Unknown]
  - Pain in extremity [Unknown]
  - Limb discomfort [Unknown]
  - Nausea [Unknown]
